FAERS Safety Report 25106891 (Version 1)
Quarter: 2025Q1

REPORT INFORMATION
  Report Type: Spontaneous
  Country: US (occurrence: None)
  Receive Date: 20250321
  Receipt Date: 20250321
  Transmission Date: 20250409
  Serious: Yes (Life-Threatening, Other)
  Sender: FDA-CTU
  Company Number: None

PATIENT
  Age: 83 Year
  Sex: Female
  Weight: 59 kg

DRUGS (1)
  1. KISUNLA [Suspect]
     Active Substance: DONANEMAB-AZBT
     Indication: Dementia Alzheimer^s type
     Dosage: FREQUENCY : MONTHLY;?
     Route: 042
     Dates: start: 20241216, end: 20250210

REACTIONS (4)
  - Headache [None]
  - Cough [None]
  - Rash [None]
  - Squamous cell carcinoma [None]

NARRATIVE: CASE EVENT DATE: 20250212
